FAERS Safety Report 8372992-X (Version None)
Quarter: 2012Q2

REPORT INFORMATION
  Report Type: 
  Country: None (occurrence: None)
  Receive Date: 20120521
  Receipt Date: 20120109
  Transmission Date: 20120825
  Serious: No
  Sender: FDA-Public Use
  Company Number: US-ASTRAZENECA-2012SE05626

PATIENT
  Sex: Female

DRUGS (5)
  1. ANASTROZOLE [Concomitant]
     Dosage: UNKNOWN
  2. LEVOTHYROXINE SODIUM [Concomitant]
     Dosage: UNKNOWN
  3. PRILOSEC OTC [Suspect]
     Route: 048
     Dates: end: 20120102
  4. LOVASTATIN [Concomitant]
     Dosage: UNKNOWN
  5. GLIMEPIRIDE [Concomitant]
     Dosage: UNKNOWN

REACTIONS (3)
  - ERUCTATION [None]
  - DIARRHOEA [None]
  - FLATULENCE [None]
